FAERS Safety Report 5708870-1 (Version None)
Quarter: 2008Q2

REPORT INFORMATION
  Report Type: 
  Country: None (occurrence: None)
  Receive Date: 20080416
  Receipt Date: 20080407
  Transmission Date: 20081010
  Serious: No
  Sender: FDA-Public Use
  Company Number: CLOF-1000132

PATIENT
  Age: 65 Year
  Sex: Male
  Weight: 101 kg

DRUGS (13)
  1. CLOLAR [Suspect]
     Indication: MYELOID LEUKAEMIA
     Dosage: 40 MG/M2, QDX5, INTRAVENOUS
     Route: 042
     Dates: start: 20080402, end: 20080406
  2. CYTARABINE [Suspect]
     Indication: MYELOID LEUKAEMIA
     Dosage: 1 G/M2, QDX5, INTRAVENOUS
     Route: 042
     Dates: start: 20080402, end: 20080406
  3. THYMOGLOBULIN [Suspect]
     Indication: MYELOID LEUKAEMIA
     Dosage: 1 MG/M2, ONCE, INTRAVENOUS, 2.5 MG/M2, QD, INTRAVENOUS
     Route: 042
     Dates: start: 20080404, end: 20080404
  4. THYMOGLOBULIN [Suspect]
     Indication: MYELOID LEUKAEMIA
     Dosage: 1 MG/M2, ONCE, INTRAVENOUS, 2.5 MG/M2, QD, INTRAVENOUS
     Route: 042
     Dates: start: 20080405, end: 20080406
  5. AZTREONAM (AZTREONAM) [Concomitant]
  6. FLUCONAZOLE [Concomitant]
  7. METRONIDAZOLE [Concomitant]
  8. DILTIAZEM [Concomitant]
  9. FAMOTIDINE [Concomitant]
  10. NEUPOGEN [Concomitant]
  11. PREDNISOLONE [Concomitant]
  12. TACROLIMUS [Concomitant]
  13. VALACYCLOVIR [Concomitant]

REACTIONS (3)
  - DIVERTICULAR PERFORATION [None]
  - DIVERTICULITIS [None]
  - LIVER FUNCTION TEST ABNORMAL [None]
